FAERS Safety Report 4431107-0 (Version None)
Quarter: 2004Q3

REPORT INFORMATION
  Report Type: 
  Country: None (occurrence: None)
  Receive Date: 20040817
  Receipt Date: 20040809
  Transmission Date: 20050211
  Serious: Yes (Hospitalization)
  Sender: FDA-Public Use
  Company Number: 200410184BYL

PATIENT
  Age: 44 Year
  Sex: Male

DRUGS (5)
  1. CIPROXAN IV (CIPROLOFAXIN) [Suspect]
     Indication: PNEUMONIA ASPIRATION
     Dosage: 300 MG, BID, INTRAVENOUS DRIP
     Route: 041
     Dates: start: 20040330, end: 20040402
  2. ZANTAC [Suspect]
     Indication: PROPHYLAXIS AGAINST GASTROINTESTINAL ULCER
     Dosage: 100 MG, BID, INTRAVENOUS DRIP
     Route: 041
     Dates: start: 20040330, end: 20040401
  3. FIRSTCIN [Concomitant]
  4. SOLU-MEDROL [Concomitant]
  5. DEPAKENE [Concomitant]

REACTIONS (5)
  - ASPARTATE AMINOTRANSFERASE INCREASED [None]
  - BLOOD LACTATE DEHYDROGENASE INCREASED [None]
  - HEPATIC FUNCTION ABNORMAL [None]
  - RHABDOMYOLYSIS [None]
  - SYSTEMIC INFLAMMATORY RESPONSE SYNDROME [None]
